FAERS Safety Report 4525173-1 (Version None)
Quarter: 2004Q4

REPORT INFORMATION
  Report Type: 
  Country: None (occurrence: None)
  Receive Date: 20041116
  Receipt Date: 20040723
  Transmission Date: 20050328
  Serious: No
  Sender: FDA-Public Use
  Company Number: S04-USA-04900-01

PATIENT
  Age: 81 Year
  Sex: Female

DRUGS (13)
  1. NAMENDA [Suspect]
     Indication: MEMORY IMPAIRMENT
     Dosage: 10 MG BID PO
     Route: 048
     Dates: start: 20040101, end: 20040101
  2. NAMENDA [Suspect]
     Indication: MEMORY IMPAIRMENT
     Dosage: 5 MG QD PO
     Route: 048
     Dates: start: 20040101, end: 20040101
  3. NAMENDA [Suspect]
     Indication: MEMORY IMPAIRMENT
     Dosage: 5 MG BID PO
     Route: 048
     Dates: start: 20040101, end: 20040101
  4. NAMENDA [Suspect]
     Indication: MEMORY IMPAIRMENT
     Dosage: 10 MG QAM PO
     Route: 048
     Dates: start: 20040101, end: 20040101
  5. NAMENDA [Suspect]
     Indication: MEMORY IMPAIRMENT
     Dosage: 5 MG QHS PO
     Route: 048
     Dates: start: 20040101, end: 20040101
  6. NAMENDA [Suspect]
     Indication: MEMORY IMPAIRMENT
     Dosage: 10 MG BID PO
     Route: 048
     Dates: start: 20040601
  7. NAMENDA [Suspect]
     Indication: MEMORY IMPAIRMENT
     Dosage: 5 MG QD  PO
     Route: 048
     Dates: start: 20040601, end: 20040601
  8. NAMENDA [Suspect]
     Indication: MEMORY IMPAIRMENT
     Dosage: 5 MG BID PO
     Route: 048
     Dates: start: 20040601, end: 20040601
  9. NAMENDA [Suspect]
     Indication: MEMORY IMPAIRMENT
     Dosage: 10 MG QAM PO
     Route: 048
     Dates: start: 20040601, end: 20040601
  10. NAMENDA [Suspect]
     Dosage: 5 MG QHS PO
     Route: 048
     Dates: start: 20040601, end: 20040601
  11. ZOCOR [Concomitant]
  12. FOSAMAX [Concomitant]
  13. SYNTHROID [Concomitant]

REACTIONS (2)
  - DIZZINESS [None]
  - SINUSITIS [None]
